FAERS Safety Report 6866253-5 (Version None)
Quarter: 2010Q3

REPORT INFORMATION
  Report Type: 
  Country: None (occurrence: None)
  Receive Date: 20100722
  Receipt Date: 20100714
  Transmission Date: 20110219
  Serious: Yes (Other)
  Sender: FDA-Public Use
  Company Number: US-RB-012848-10

PATIENT
  Age: 47 Year
  Sex: Female
  Weight: 54 kg

DRUGS (1)
  1. MUCINEX DM [Suspect]
     Dosage: PATIENT TOOK 1 PILL EVERY 12 HOURS FOR 2 DAYS. SHE TOOK TWO THIS MORNING (14-JUL-2010).
     Route: 048
     Dates: start: 20100712

REACTIONS (4)
  - COUGH [None]
  - HYPERHIDROSIS [None]
  - LOSS OF CONSCIOUSNESS [None]
  - SOMNOLENCE [None]
